FAERS Safety Report 20715401 (Version 3)
Quarter: 2022Q3

REPORT INFORMATION
  Report Type: Spontaneous
  Country: US (occurrence: US)
  Receive Date: 20220415
  Receipt Date: 20220729
  Transmission Date: 20221026
  Serious: No
  Sender: FDA-Public Use
  Company Number: US-PFIZER INC-202200431444

PATIENT
  Age: 43 Year
  Sex: Female

DRUGS (2)
  1. IBRANCE [Suspect]
     Active Substance: PALBOCICLIB
     Dosage: TAKE 1 TABLET DAILY FOR 21 DAYS
     Dates: start: 20220204
  2. IBRANCE [Suspect]
     Active Substance: PALBOCICLIB
     Dosage: 100 MG, CYCLIC (TAKE 1 TABLET DAILY FOR 21 DAYS)
     Dates: start: 20220204

REACTIONS (3)
  - White blood cell count decreased [Not Recovered/Not Resolved]
  - COVID-19 [Recovered/Resolved]
  - Fatigue [Unknown]
